FAERS Safety Report 14716035 (Version 1)
Quarter: 2018Q1

REPORT INFORMATION
  Report Type: Spontaneous
  Country: US (occurrence: US)
  Receive Date: 20180330
  Receipt Date: 20180330
  Transmission Date: 20180509
  Serious: No
  Sender: FDA-Public Use
  Company Number: None

PATIENT
  Age: 63 Year
  Sex: Female

DRUGS (17)
  1. NITROGLYCERIN. [Concomitant]
     Active Substance: NITROGLYCERIN
  2. OCALIVA [Suspect]
     Active Substance: OBETICHOLIC ACID
     Indication: PRIMARY BILIARY CHOLANGITIS
     Route: 048
     Dates: start: 20170418
  3. SERTRALINE [Concomitant]
     Active Substance: SERTRALINE HYDROCHLORIDE
  4. MONTELUKAST [Concomitant]
     Active Substance: MONTELUKAST SODIUM
  5. WARFARIN [Concomitant]
     Active Substance: WARFARIN
  6. BREO ELLIPTA [Concomitant]
     Active Substance: FLUTICASONE FUROATE\VILANTEROL TRIFENATATE
  7. SPIRONOLACT [Concomitant]
     Active Substance: SPIRONOLACTONE
  8. MODAFINIL. [Concomitant]
     Active Substance: MODAFINIL
  9. SYNTHROID [Concomitant]
     Active Substance: LEVOTHYROXINE SODIUM
  10. MYRBETRIQ [Concomitant]
     Active Substance: MIRABEGRON
  11. AMPICILLIN [Concomitant]
     Active Substance: AMPICILLIN
  12. ALLOPURINOL. [Concomitant]
     Active Substance: ALLOPURINOL
  13. FUROSEMIDE. [Concomitant]
     Active Substance: FUROSEMIDE
  14. ROPINIROLE. [Concomitant]
     Active Substance: ROPINIROLE
  15. CYCLOBENZAPR [Concomitant]
     Active Substance: CYCLOBENZAPRINE
  16. LACTULOSE. [Concomitant]
     Active Substance: LACTULOSE
  17. OMEPRAZOLE. [Concomitant]
     Active Substance: OMEPRAZOLE

REACTIONS (2)
  - Alanine aminotransferase increased [None]
  - Blood alkaline phosphatase increased [None]
